FAERS Safety Report 7286147-3 (Version None)
Quarter: 2011Q1

REPORT INFORMATION
  Report Type: 
  Country: None (occurrence: None)
  Receive Date: 20110126
  Receipt Date: 20110103
  Transmission Date: 20110831
  Serious: Yes (Hospitalization)
  Sender: FDA-Public Use
  Company Number: 2011SP000158

PATIENT
  Age: 31 Year
  Sex: Female
  Weight: 104.3273 kg

DRUGS (2)
  1. PHENERGAN [Concomitant]
  2. IMPLANON [Suspect]
     Indication: CONTRACEPTION
     Dates: start: 20090421, end: 20101201

REACTIONS (15)
  - NAUSEA [None]
  - TREMOR [None]
  - HORMONE LEVEL ABNORMAL [None]
  - ABDOMINAL PAIN [None]
  - UTERINE POLYP [None]
  - DIARRHOEA [None]
  - BENIGN BREAST NEOPLASM [None]
  - MUSCLE SPASMS [None]
  - PAIN [None]
  - HOT FLUSH [None]
  - PROGESTERONE INCREASED [None]
  - UTERINE HAEMORRHAGE [None]
  - BREAST TENDERNESS [None]
  - DEHYDRATION [None]
  - ABDOMINAL DISCOMFORT [None]
